FAERS Safety Report 6371557-9 (Version None)
Quarter: 2009Q3

REPORT INFORMATION
  Report Type: 
  Country: None (occurrence: None)
  Receive Date: 20090923
  Receipt Date: 20080527
  Transmission Date: 20100115
  Serious: Yes (Hospitalization)
  Sender: FDA-Public Use
  Company Number: US-ASTRAZENECA-2007UW17309

PATIENT
  Age: 44 Year
  Sex: Female
  Weight: 95.3 kg

DRUGS (19)
  1. SEROQUEL [Suspect]
     Indication: DEPRESSION
     Route: 048
     Dates: start: 20050501, end: 20061201
  2. XANAX [Concomitant]
  3. SYNTHROID [Concomitant]
  4. RELPAX [Concomitant]
  5. CYMBALTA [Concomitant]
  6. QUESTRAN LIGHT POWD [Concomitant]
  7. LEXAPRO [Concomitant]
  8. METFORMIN HCL [Concomitant]
  9. LASIX [Concomitant]
  10. TRAZODONE HCL [Concomitant]
  11. PRILOSEC [Concomitant]
  12. LYRICA [Concomitant]
  13. TRIMETHOPRIM [Concomitant]
  14. ROBAXIN [Concomitant]
  15. SIMVASTATIN [Concomitant]
  16. BYETTA [Concomitant]
  17. FLONASE [Concomitant]
  18. ATIVAN [Concomitant]
  19. ULTRAM [Concomitant]

REACTIONS (2)
  - DIABETES MELLITUS [None]
  - TYPE 2 DIABETES MELLITUS [None]
